FAERS Safety Report 5521465-8 (Version None)
Quarter: 2007Q4

REPORT INFORMATION
  Report Type: 
  Country: None (occurrence: None)
  Receive Date: 20071119
  Receipt Date: 20071107
  Transmission Date: 20080405
  Serious: Yes (Disabling)
  Sender: FDA-Public Use
  Company Number: DE-PFIZER INC-2007072227

PATIENT
  Sex: Female
  Weight: 65 kg

DRUGS (4)
  1. SUTENT [Suspect]
     Indication: METASTATIC RENAL CELL CARCINOMA
     Dosage: DAILY DOSE:90MG
     Route: 048
     Dates: start: 20070413, end: 20070501
  2. CAPOZIDE [Concomitant]
     Dosage: TEXT:50/25 MG
     Route: 048
  3. AMLODIPINE [Concomitant]
     Route: 048
  4. METOPROLOL TARTRATE [Concomitant]
     Route: 048

REACTIONS (6)
  - BLOOD PRESSURE FLUCTUATION [None]
  - BLOOD THYROID STIMULATING HORMONE INCREASED [None]
  - DYSCHEZIA [None]
  - HYPERKALAEMIA [None]
  - HYPONATRAEMIA [None]
  - OEDEMA [None]
